FAERS Safety Report 25969622 (Version 1)
Quarter: 2025Q4

REPORT INFORMATION
  Report Type: Spontaneous
  Country: BR (occurrence: BR)
  Receive Date: 20251028
  Receipt Date: 20251028
  Transmission Date: 20260118
  Serious: Yes (Other)
  Sender: SAMSUNG BIOEPIS
  Company Number: BR-SAMSUNG BIOEPIS-SB-2025-35355

PATIENT
  Sex: Female

DRUGS (1)
  1. TRASTUZUMAB [Suspect]
     Active Substance: TRASTUZUMAB
     Indication: Breast cancer
     Route: 042

REACTIONS (5)
  - Anaphylactic reaction [Unknown]
  - Infusion related reaction [Unknown]
  - Dyspnoea [Unknown]
  - Tremor [Unknown]
  - Chest pain [Unknown]
